FAERS Safety Report 13938115 (Version 1)
Quarter: 2017Q3

REPORT INFORMATION
  Report Type: Report from Study
  Country: GB (occurrence: GB)
  Receive Date: 20170905
  Receipt Date: 20170905
  Transmission Date: 20171127
  Serious: Yes (Hospitalization)
  Sender: FDA-Public Use
  Company Number: GB-HIKMA PHARMACEUTICALS CO. LTD-2017GB011487

PATIENT

DRUGS (2)
  1. METHOTREXATE. [Concomitant]
     Active Substance: METHOTREXATE
     Indication: RHEUMATOID ARTHRITIS
     Dosage: UNK
     Route: 065
  2. REMSIMA [Suspect]
     Active Substance: INFLIXIMAB
     Indication: RHEUMATOID ARTHRITIS
     Dosage: UNK
     Route: 042
     Dates: start: 20160718, end: 20160718

REACTIONS (9)
  - Dizziness [Unknown]
  - Eyelid ptosis [Unknown]
  - Strabismus [Unknown]
  - Weight decreased [Unknown]
  - Decreased appetite [Unknown]
  - Orthostatic hypotension [Recovered/Resolved]
  - Cerebral haemorrhage [Unknown]
  - Eyelid bleeding [Unknown]
  - Fall [Unknown]

NARRATIVE: CASE EVENT DATE: 20170205
